FAERS Safety Report 13276351 (Version 1)
Quarter: 2017Q1

REPORT INFORMATION
  Report Type: Spontaneous
  Country: US (occurrence: US)
  Receive Date: 20170228
  Receipt Date: 20170228
  Transmission Date: 20170428
  Serious: Yes (Hospitalization)
  Sender: FDA-Public Use
  Company Number: US-PROCTER+GAMBLE-GS17017446

PATIENT
  Age: 56 Year
  Sex: Male

DRUGS (1)
  1. VICKS NYQUIL COUGH [Suspect]
     Active Substance: DEXTROMETHORPHAN HYDROBROMIDE\DOXYLAMINE SUCCINATE
     Dosage: RECOMMENDED DOSAGE
     Route: 048
     Dates: end: 2007

REACTIONS (2)
  - Hepatic enzyme increased [Recovered/Resolved]
  - Chromaturia [Recovered/Resolved]
